FAERS Safety Report 6722262-8 (Version None)
Quarter: 2010Q2

REPORT INFORMATION
  Report Type: 
  Country: None (occurrence: None)
  Receive Date: 20100505
  Receipt Date: 20100129
  Transmission Date: 20101027
  Serious: No
  Sender: FDA-Public Use
  Company Number: WAES 1002USA00041

PATIENT
  Age: 24 Year
  Sex: Male

DRUGS (3)
  1. ISENTRESS [Suspect]
     Indication: HIV INFECTION
     Dosage: 400 MG BID PO
     Route: 048
  2. KALETRA [Concomitant]
  3. VIREAD [Concomitant]

REACTIONS (1)
  - ABDOMINAL PAIN UPPER [None]
